FAERS Safety Report 4372743-X (Version None)
Quarter: 2004Q2

REPORT INFORMATION
  Report Type: 
  Country: None (occurrence: None)
  Receive Date: 20040526
  Receipt Date: 20040513
  Transmission Date: 20050107
  Serious: Yes (Hospitalization, Other)
  Sender: FDA-Public Use
  Company Number: 2004032455

PATIENT
  Age: 55 Year
  Sex: Male
  Weight: 127.0072 kg

DRUGS (1)
  1. NEURONTIN [Suspect]
     Dosage: 2400 MG (600 MG, TID), ORAL
     Route: 048

REACTIONS (13)
  - ARTHRALGIA [None]
  - ASPIRATION [None]
  - COGNITIVE DISORDER [None]
  - EXTRADURAL ABSCESS [None]
  - FALL [None]
  - INFLUENZA [None]
  - MOBILITY DECREASED [None]
  - MUSCLE ABSCESS [None]
  - MYALGIA [None]
  - ROTATOR CUFF SYNDROME [None]
  - SEPSIS [None]
  - SPEECH DISORDER [None]
  - STAPHYLOCOCCAL INFECTION [None]
